FAERS Safety Report 5502023-8 (Version None)
Quarter: 2007Q4

REPORT INFORMATION
  Report Type: 
  Country: None (occurrence: None)
  Receive Date: 20071030
  Receipt Date: 20071025
  Transmission Date: 20080405
  Serious: Yes (Other)
  Sender: FDA-Public Use
  Company Number: A0689756A

PATIENT
  Age: 49 Year
  Sex: Female

DRUGS (2)
  1. ALLI [Suspect]
     Dates: start: 20071006, end: 20071013
  2. TOPROL-XL [Suspect]

REACTIONS (5)
  - BLOOD PRESSURE IMMEASURABLE [None]
  - DIZZINESS [None]
  - DRUG INTERACTION [None]
  - FEELING COLD [None]
  - SYNCOPE [None]
